FAERS Safety Report 11395714 (Version 1)
Quarter: 2015Q3

REPORT INFORMATION
  Report Type: Spontaneous
  Country: US (occurrence: US)
  Receive Date: 20150819
  Receipt Date: 20150819
  Transmission Date: 20151125
  Serious: No
  Sender: FDA-Public Use
  Company Number: US-JNJFOC-20150808649

PATIENT
  Sex: Female

DRUGS (3)
  1. ACETAMINOPHEN AND CODEINE [Suspect]
     Active Substance: ACETAMINOPHEN\CODEINE PHOSPHATE
     Indication: PAIN
     Route: 065
     Dates: start: 201311
  2. EYE DROPS (UNSPECIFIED) [Concomitant]
     Indication: PRODUCT USED FOR UNKNOWN INDICATION
     Route: 065
  3. TYLENOL WITH CODEINE [Suspect]
     Active Substance: ACETAMINOPHEN\CODEINE PHOSPHATE
     Indication: ARTHRALGIA
     Dosage: 1 TABLET EVERY 6 - 8 HOURS
     Route: 065
     Dates: start: 201106, end: 201311

REACTIONS (3)
  - Eye disorder [Unknown]
  - Drug effect decreased [Unknown]
  - Synovial cyst [Unknown]
